FAERS Safety Report 18590774 (Version 1)
Quarter: 2020Q4

REPORT INFORMATION
  Report Type: Spontaneous
  Country: CN (occurrence: CN)
  Receive Date: 20201208
  Receipt Date: 20201208
  Transmission Date: 20210114
  Serious: Yes (Hospitalization, Disabling, Other)
  Sender: FDA-Public Use
  Company Number: CN-009507513-2012CHN001129

PATIENT
  Age: 85 Year
  Sex: Male
  Weight: 68 kg

DRUGS (1)
  1. TIENAM [Suspect]
     Active Substance: CILASTATIN SODIUM\IMIPENEM
     Indication: INFECTION
     Dosage: 1 GRAM, TID (THREE TIMES PER DAY)
     Route: 041
     Dates: start: 20201020, end: 20201021

REACTIONS (6)
  - Hypertension [Unknown]
  - Urinary tract infection [Unknown]
  - Tuberculosis of genitourinary system [Unknown]
  - Pulmonary tuberculosis [Unknown]
  - Hypersensitivity [Recovering/Resolving]
  - Coronary artery disease [Unknown]

NARRATIVE: CASE EVENT DATE: 2020
